FAERS Safety Report 4475965-2 (Version None)
Quarter: 2004Q4

REPORT INFORMATION
  Report Type: 
  Country: None (occurrence: None)
  Receive Date: 20041012
  Receipt Date: 20041001
  Transmission Date: 20050328
  Serious: Yes (Other)
  Sender: FDA-Public Use
  Company Number: 2004-04296

PATIENT
  Age: 64 Year
  Sex: Female

DRUGS (14)
  1. COLCHINE [Suspect]
     Dosage: ORAL
     Route: 048
     Dates: end: 20030101
  2. TRACLEER [Suspect]
     Indication: PULMONARY HYPERTENSION
     Dosage: 125 MG, BID, ORAL; 62.5 MG, BID
     Route: 048
     Dates: start: 20030101
  3. DILTIAZEM [Concomitant]
  4. METOLAZONE [Concomitant]
  5. SYNTHROID [Concomitant]
  6. HYDROXYZINE [Concomitant]
  7. PROPOXYPHENE NAPSYLATE W/ACTEMINOPHENE [Concomitant]
  8. LEXAPRO [Concomitant]
  9. PROTONIX [Concomitant]
  10. WARFARIN (WARFARIN) [Concomitant]
  11. FUROSEMIDE [Concomitant]
  12. NORTRIPTYLINE HCL [Concomitant]
  13. OXYGEN (OXYGEN) [Concomitant]
  14. NICOTINIC ACID [Concomitant]

REACTIONS (5)
  - ALANINE AMINOTRANSFERASE INCREASED [None]
  - ASPARTATE AMINOTRANSFERASE INCREASED [None]
  - BLOOD ALKALINE PHOSPHATASE INCREASED [None]
  - HEADACHE [None]
  - WEIGHT INCREASED [None]
